FAERS Safety Report 25458379 (Version 2)
Quarter: 2025Q3

REPORT INFORMATION
  Report Type: Spontaneous
  Country: US (occurrence: None)
  Receive Date: 20250620
  Receipt Date: 20250715
  Transmission Date: 20251020
  Serious: Yes (Other)
  Sender: EMMAUS LIFE SCIENCES
  Company Number: US-Emmaus Medical, Inc.-EMM202506-000092

PATIENT
  Age: 32 Year
  Sex: Female

DRUGS (2)
  1. ENDARI [Suspect]
     Active Substance: GLUTAMINE
     Indication: Embolism venous
     Dates: start: 20241014
  2. ENDARI [Suspect]
     Active Substance: GLUTAMINE
     Indication: Sickle cell disease

REACTIONS (2)
  - Sickle cell anaemia with crisis [Recovered/Resolved]
  - Weight increased [Unknown]

NARRATIVE: CASE EVENT DATE: 20250501
